FAERS Safety Report 6254255-1 (Version None)
Quarter: 2009Q3

REPORT INFORMATION
  Report Type: 
  Country: None (occurrence: None)
  Receive Date: 20090702
  Receipt Date: 20090625
  Transmission Date: 20100115
  Serious: Yes (Hospitalization, Other)
  Sender: FDA-Public Use
  Company Number: CA-AMGEN-KDL297694

PATIENT
  Sex: Female
  Weight: 61.3 kg

DRUGS (16)
  1. ENBREL [Suspect]
     Indication: DRUG USE FOR UNKNOWN INDICATION
     Route: 058
     Dates: start: 20080625
  2. GRAVOL TAB [Concomitant]
  3. MOTILIUM [Concomitant]
  4. NEXIUM [Concomitant]
  5. LYRICA [Concomitant]
  6. REMERON [Concomitant]
  7. CELEBREX [Concomitant]
  8. DILAUDID [Concomitant]
     Route: 058
  9. COLCHICINE [Concomitant]
  10. FOLIC ACID [Concomitant]
  11. METHOTREXATE [Concomitant]
     Route: 058
  12. CALCIUM WITH VITAMIN D [Concomitant]
  13. FOSAMAX [Concomitant]
     Route: 048
  14. ELAVIL [Concomitant]
  15. LEVOTHYROXINE SODIUM [Concomitant]
  16. PREDNISONE [Concomitant]
     Route: 048

REACTIONS (4)
  - BACK PAIN [None]
  - DIABETES MELLITUS [None]
  - LOSS OF CONSCIOUSNESS [None]
  - URINARY RETENTION [None]
